FAERS Safety Report 4836579-5 (Version None)
Quarter: 2005Q4

REPORT INFORMATION
  Report Type: 
  Country: None (occurrence: None)
  Receive Date: 20051121
  Receipt Date: 20051108
  Transmission Date: 20060501
  Serious: Yes (Other)
  Sender: FDA-Public Use
  Company Number: 2005153279

PATIENT
  Age: 75 Year
  Sex: Female
  Weight: 56.6996 kg

DRUGS (6)
  1. XALATAN [Suspect]
     Indication: GLAUCOMA
     Dosage: 1.5 MCG (1.5 MCG, QD INTERVAL:  EVERY DAY), OPHTHALMIC
     Route: 047
     Dates: start: 19970101
  2. PREDNISONE [Suspect]
     Indication: ILL-DEFINED DISORDER
     Dates: start: 19970101
  3. MULTIVITAMIN AND MINERAL SUPPLEMENT (MINERALS NOS, VITAMINS NOS) [Concomitant]
  4. CALCIUM (CALCIUM) [Concomitant]
  5. MAGNESIUM (MAGNESIUM) [Concomitant]
  6. TAURINE (TAURINE) [Concomitant]

REACTIONS (2)
  - PERICARDIAL EFFUSION [None]
  - PSYCHOTIC DISORDER [None]
